FAERS Safety Report 7312832-0 (Version None)
Quarter: 2011Q1

REPORT INFORMATION
  Report Type: 
  Country: None (occurrence: None)
  Receive Date: 20110224
  Receipt Date: 20101203
  Transmission Date: 20110831
  Serious: No
  Sender: FDA-Public Use
  Company Number: US-MYLANLABS-2010S1022386

PATIENT
  Age: 54 Year
  Sex: Female

DRUGS (3)
  1. METOPROLOL TARTRATE [Suspect]
     Indication: BLOOD PRESSURE INCREASED
     Route: 048
  2. ASA [Concomitant]
     Route: 048
  3. METOPROLOL TARTRATE [Suspect]
     Route: 048

REACTIONS (2)
  - MALAISE [None]
  - DYSPNOEA [None]
